FAERS Safety Report 4682511-7 (Version None)
Quarter: 2005Q2

REPORT INFORMATION
  Report Type: 
  Country: None (occurrence: None)
  Receive Date: 20050602
  Receipt Date: 20050414
  Transmission Date: 20051028
  Serious: No
  Sender: FDA-Public Use
  Company Number: USA050495496

PATIENT
  Age: 55 Year
  Sex: Male

DRUGS (6)
  1. CYMBALTA [Suspect]
     Indication: DEPRESSION
     Dosage: 60 MG DAY
     Dates: start: 20041201, end: 20040101
  2. ALBUTEROL [Concomitant]
  3. COMBIVENT [Concomitant]
  4. ADVAIR [Concomitant]
  5. APO-IBUPROFEN (IBUPROFEN) [Concomitant]
  6. PREVACID [Concomitant]

REACTIONS (1)
  - TINNITUS [None]
